FAERS Safety Report 21308191 (Version 1)
Quarter: 2022Q3

REPORT INFORMATION
  Report Type: Spontaneous
  Country: US (occurrence: None)
  Receive Date: 20220907
  Receipt Date: 20220907
  Transmission Date: 20221026
  Serious: No
  Sender: FDA-Public Use
  Company Number: None

PATIENT
  Age: 51 Year
  Sex: Female
  Weight: 54 kg

DRUGS (2)
  1. ROSUVASTATIN [Suspect]
     Active Substance: ROSUVASTATIN
     Indication: Blood cholesterol increased
     Dosage: 1 TABLET ORAL?
     Route: 048
     Dates: start: 20200630, end: 20220825
  2. LEVOTHYROXINE [Concomitant]
     Active Substance: LEVOTHYROXINE

REACTIONS (4)
  - Pain in extremity [None]
  - Pain in extremity [None]
  - Gait disturbance [None]
  - Restless legs syndrome [None]

NARRATIVE: CASE EVENT DATE: 20200616
